FAERS Safety Report 5072253-0 (Version None)
Quarter: 2006Q3

REPORT INFORMATION
  Report Type: 
  Country: None (occurrence: None)
  Receive Date: 20060807
  Receipt Date: 20060721
  Transmission Date: 20061208
  Serious: Yes (Hospitalization)
  Sender: FDA-Public Use
  Company Number: US-BAYER-200614752BWH

PATIENT
  Age: 57 Year
  Sex: Male
  Weight: 79 kg

DRUGS (2)
  1. SORAFENIB [Suspect]
     Indication: NON-SMALL CELL LUNG CANCER
     Dosage: TOTAL DAILY DOSE: 800 MG  UNIT DOSE: 200 MG
     Route: 048
     Dates: start: 20060505
  2. SORAFENIB OR PLACEBO [Suspect]
     Indication: NON-SMALL CELL LUNG CANCER
     Dosage: TOTAL DAILY DOSE: 800 MG  UNIT DOSE: 200 MG
     Route: 048
     Dates: start: 20060602, end: 20060714

REACTIONS (3)
  - HYPOALBUMINAEMIA [None]
  - PNEUMONIA [None]
  - PNEUMONITIS [None]
